FAERS Safety Report 10145070 (Version 1)
Quarter: 2014Q2

REPORT INFORMATION
  Report Type: Spontaneous
  Country: BR (occurrence: BR)
  Receive Date: 20140501
  Receipt Date: 20140501
  Transmission Date: 20141212
  Serious: Yes (Hospitalization)
  Sender: FDA-Public Use
  Company Number: BR-ROCHE-1386795

PATIENT
  Age: 37 Year
  Sex: Male
  Weight: 87 kg

DRUGS (7)
  1. RIVOTRIL [Suspect]
     Indication: SOCIAL PHOBIA
     Dosage: 1 TABLET IN THE MORNING AND 2 TABLETS AT NIGHT
     Route: 048
     Dates: start: 2010
  2. RIVOTRIL [Suspect]
     Indication: ANXIETY
     Dosage: 1 TABLET IN THE MORNING, 1 TABLET IN THE AFTERNOON AND 2 TABLETS AT NIGHT, IN A TOTAL OF 8MG, DOSE I
     Route: 048
  3. RIVOTRIL [Suspect]
     Indication: OBSESSIVE-COMPULSIVE DISORDER
  4. RISPERIDONE [Concomitant]
     Indication: OBSESSIVE-COMPULSIVE DISORDER
     Dosage: 2 TABLETS AT NIGHT
     Route: 048
     Dates: start: 201401
  5. VALPROIC ACID [Concomitant]
     Indication: BIPOLAR DISORDER
     Dosage: 1 TABLET IN THE MORNING AND 1 TABLET AT NIGHT
     Route: 048
     Dates: start: 201402
  6. SERTRALINE [Concomitant]
     Indication: OBSESSIVE-COMPULSIVE DISORDER
     Dosage: 2 TABLETS IN THE MORNING
     Route: 048
     Dates: start: 20140318
  7. DIAZEPAM [Concomitant]
     Route: 065

REACTIONS (8)
  - Obsessive-compulsive disorder [Not Recovered/Not Resolved]
  - Drug ineffective [Unknown]
  - Anxiety [Not Recovered/Not Resolved]
  - Tension [Not Recovered/Not Resolved]
  - Psychiatric symptom [Not Recovered/Not Resolved]
  - Anxiety [Not Recovered/Not Resolved]
  - Thinking abnormal [Not Recovered/Not Resolved]
  - Intentional product misuse [Unknown]
